FAERS Safety Report 18070293 (Version 2)
Quarter: 2021Q1

REPORT INFORMATION
  Report Type: Spontaneous
  Country: US (occurrence: US)
  Receive Date: 20200727
  Receipt Date: 20210219
  Transmission Date: 20210419
  Serious: Yes (Other)
  Sender: FDA-Public Use
  Company Number: US-TEVA-2020-US-1807153

PATIENT
  Age: 64 Year
  Sex: Female
  Weight: 73 kg

DRUGS (9)
  1. ROSUVASTATIN CALCIUM ORAL TABLET 20 MG [Concomitant]
     Route: 048
  2. SAXENDA SUBCUTANEOUS SOLUTION PEN?INJECTOR 18MG/3ML [Concomitant]
     Dosage: SUBCUTANEOUS SOLUTION PEN?INJECTOR 18MG/3ML
  3. PRAZOSIN HCL ORAL CAPSULES 5 MG [Concomitant]
     Route: 048
  4. ALPRAZOLAM ORAL TABLET 1 MG [Concomitant]
     Route: 048
  5. AUSTEDO [Suspect]
     Active Substance: DEUTETRABENAZINE
     Indication: TARDIVE DYSKINESIA
     Dosage: 24 MILLIGRAM DAILY;
     Route: 048
     Dates: start: 20200204, end: 20200412
  6. VENLAFAXINE HCL [Concomitant]
     Active Substance: VENLAFAXINE HYDROCHLORIDE
     Route: 048
  7. AUSTEDO [Suspect]
     Active Substance: DEUTETRABENAZINE
     Dosage: 36 MILLIGRAM DAILY; HAD TITRATED TO THIS DOSE
     Route: 048
     Dates: start: 20200413, end: 20200601
  8. CALCIUM/VITAMIN D ORAL TABLET 500?200 MG?UNIT [Concomitant]
     Dosage: 500?200 MG?UNIT
     Route: 048
  9. AUSTEDO [Suspect]
     Active Substance: DEUTETRABENAZINE
     Dosage: 12 MILLIGRAM DAILY; STARTED MID?JANUARY AT 6 MG BID
     Dates: start: 202001

REACTIONS (1)
  - Poisoning [Recovered/Resolved]

NARRATIVE: CASE EVENT DATE: 20200720
